FAERS Safety Report 4686920-1 (Version None)
Quarter: 2005Q2

REPORT INFORMATION
  Report Type: 
  Country: None (occurrence: None)
  Receive Date: 20050608
  Receipt Date: 20050531
  Transmission Date: 20051028
  Serious: Yes (Death)
  Sender: FDA-Public Use
  Company Number: HQWYE124702JUN05

PATIENT
  Age: 4 Year
  Sex: Female

DRUGS (1)
  1. ADVIL [Suspect]
     Route: 048

REACTIONS (3)
  - DIARRHOEA [None]
  - PERITONITIS [None]
  - VOMITING [None]
